FAERS Safety Report 5945151-5 (Version None)
Quarter: 2008Q4

REPORT INFORMATION
  Report Type: 
  Country: None (occurrence: None)
  Receive Date: 20081107
  Receipt Date: 20081031
  Transmission Date: 20090506
  Serious: Yes (Hospitalization)
  Sender: FDA-Public Use
  Company Number: A0755278A

PATIENT
  Age: 63 Year
  Sex: Female
  Weight: 56.4 kg

DRUGS (1)
  1. AVANDIA [Suspect]
     Dosage: 4MG TWICE PER DAY
     Route: 048
     Dates: start: 19990101, end: 20070501

REACTIONS (2)
  - MYOCARDIAL INFARCTION [None]
  - PAIN [None]
